FAERS Safety Report 7457381-4 (Version None)
Quarter: 2011Q2

REPORT INFORMATION
  Report Type: 
  Country: None (occurrence: None)
  Receive Date: 20110502
  Receipt Date: 20110502
  Transmission Date: 20111010
  Serious: Yes (Other)
  Sender: FDA-Public Use
  Company Number: None

PATIENT
  Age: 6 Year
  Sex: Female
  Weight: 23.587 kg

DRUGS (1)
  1. SINGULAIR [Suspect]
     Indication: HYPERSENSITIVITY
     Dosage: 1 PACKET 1 X DAY PO
     Route: 048
     Dates: start: 20110427, end: 20110428

REACTIONS (2)
  - NIGHTMARE [None]
  - HALLUCINATION [None]
